FAERS Safety Report 9230427 (Version 2)
Quarter: 2013Q2

REPORT INFORMATION
  Report Type: Spontaneous
  Country: PT (occurrence: None)
  Receive Date: 20130411
  Receipt Date: 20130429
  Transmission Date: 20140414
  Serious: Yes (Hospitalization, Other)
  Sender: FDA-Public Use
  Company Number: ACO_35352_2013

PATIENT
  Age: 41 Year
  Sex: Male

DRUGS (6)
  1. FAMPRIDINE-SR (FAMPRIDINE) TABLET [Suspect]
     Indication: MULTIPLE SCLEROSIS
     Dosage: 10 MG, BID, ORAL
     Route: 048
     Dates: start: 20120705, end: 20130210
  2. GLATIRAMER ACETATE (GLATIRAMER ACETATE) [Concomitant]
  3. DITROPAN (OXYBUTYNIN HYDROCHLORIDE) [Concomitant]
  4. LIORESAL (BACLOFEN) [Concomitant]
  5. ALPRAZOLAM (ALPRAZOLAM) [Concomitant]
  6. TAMSULOSIN (TAMSULOSIN) [Concomitant]

REACTIONS (1)
  - Bladder dysfunction [None]
